FAERS Safety Report 15478497 (Version 1)
Quarter: 2018Q4

REPORT INFORMATION
  Report Type: Spontaneous
  Country: US (occurrence: US)
  Receive Date: 20181009
  Receipt Date: 20181009
  Transmission Date: 20190205
  Serious: No
  Sender: FDA-Public Use
  Company Number: US-009507513-1809USA010466

PATIENT
  Age: 90 Year
  Sex: Male

DRUGS (1)
  1. INVANZ [Suspect]
     Active Substance: ERTAPENEM SODIUM
     Indication: SEMINAL VESICLE ABSCESS
     Dosage: UNK
     Route: 042

REACTIONS (1)
  - Off label use [Unknown]
